FAERS Safety Report 5534091-1 (Version None)
Quarter: 2007Q4

REPORT INFORMATION
  Report Type: 
  Country: None (occurrence: None)
  Receive Date: 20071129
  Receipt Date: 20071129
  Transmission Date: 20080405
  Serious: No
  Sender: FDA-Public Use
  Company Number: None

PATIENT
  Sex: Female
  Weight: 109 kg

DRUGS (2)
  1. ARIXTRA [Suspect]
     Indication: NEOPLASM MALIGNANT
     Dosage: 5MG DAILY SQ
     Route: 058
  2. ARIXTRA [Suspect]
     Indication: THROMBOSIS
     Dosage: 5MG DAILY SQ
     Route: 058

REACTIONS (1)
  - SYNCOPE VASOVAGAL [None]
